FAERS Safety Report 7939339-1 (Version None)
Quarter: 2011Q4

REPORT INFORMATION
  Report Type: 
  Country: None (occurrence: None)
  Receive Date: 20111125
  Receipt Date: 20110318
  Transmission Date: 20120403
  Serious: No
  Sender: FDA-Public Use
  Company Number: US-BAYER-2011-077661

PATIENT
  Age: 68 Year
  Sex: Male

DRUGS (1)
  1. SARGRAMOSTIM [Suspect]
     Indication: CYSTITIS RADIATION
     Dosage: 250 ?G, QD
     Route: 058

REACTIONS (4)
  - PAIN [None]
  - ERYTHEMA [None]
  - FEELING HOT [None]
  - SWELLING [None]
